FAERS Safety Report 7824858-9 (Version None)
Quarter: 2011Q4

REPORT INFORMATION
  Report Type: 
  Country: None (occurrence: None)
  Receive Date: 20111019
  Receipt Date: 20110215
  Transmission Date: 20120403
  Serious: No
  Sender: FDA-Public Use
  Company Number: US-BRISTOL-MYERS SQUIBB COMPANY-15551674

PATIENT
  Age: 60 Year
  Sex: Female

DRUGS (4)
  1. CLONAZEPAM [Concomitant]
  2. DILTIAZEM HCL [Concomitant]
  3. ALLEGRA [Concomitant]
  4. AVALIDE [Suspect]
     Dates: start: 20070101

REACTIONS (4)
  - ATTENTION DEFICIT/HYPERACTIVITY DISORDER [None]
  - WEIGHT INCREASED [None]
  - MYALGIA [None]
  - HYPERTENSION [None]
